FAERS Safety Report 8341934-5 (Version None)
Quarter: 2012Q2

REPORT INFORMATION
  Report Type: 
  Country: None (occurrence: None)
  Receive Date: 20120507
  Receipt Date: 20120418
  Transmission Date: 20120825
  Serious: Yes (Death)
  Sender: FDA-Public Use
  Company Number: US-BAXTER-2012BAX003324

PATIENT
  Sex: Female

DRUGS (3)
  1. DIANEAL [Suspect]
     Route: 033
     Dates: start: 20111215, end: 20120418
  2. DIANEAL [Suspect]
     Route: 033
     Dates: start: 20111215, end: 20120418
  3. DIANEAL [Suspect]
     Route: 033
     Dates: start: 20111215, end: 20120418

REACTIONS (1)
  - CARDIAC DISORDER [None]
